FAERS Safety Report 8796316 (Version 2)
Quarter: 2012Q4

REPORT INFORMATION
  Report Type: 
  Country: HU (occurrence: HU)
  Receive Date: 20120919
  Receipt Date: 20120926
  Transmission Date: 20130627
  Serious: Yes (Other)
  Sender: FDA-Public Use
  Company Number: HU-PFIZER INC-2012227806

PATIENT
  Age: 61 Year
  Sex: Male
  Weight: 110 kg

DRUGS (1)
  1. XALATAN [Suspect]
     Dosage: 1x1/day
     Dates: start: 20110307, end: 201109

REACTIONS (1)
  - Arrhythmia [Recovered/Resolved]
